FAERS Safety Report 4297708-8 (Version None)
Quarter: 2004Q1

REPORT INFORMATION
  Report Type: 
  Country: None (occurrence: None)
  Receive Date: 20040126
  Receipt Date: 20030916
  Transmission Date: 20041129
  Serious: No
  Sender: FDA-Public Use
  Company Number: USA030947480

PATIENT
  Age: 8 Year
  Sex: Male
  Weight: 24 kg

DRUGS (2)
  1. STRATTERA [Suspect]
     Indication: ATTENTION DEFICIT/HYPERACTIVITY DISORDER
     Dosage: 25 MG/IN THE EVENING
     Dates: start: 20030909
  2. AMOXICILLIN [Concomitant]

REACTIONS (3)
  - BRUXISM [None]
  - HALLUCINATION, VISUAL [None]
  - SOMNOLENCE [None]
